FAERS Safety Report 8635918 (Version 2)
Quarter: 2014Q1

REPORT INFORMATION
  Report Type: Spontaneous
  Country: US (occurrence: None)
  Receive Date: 20120323
  Receipt Date: 20130305
  Transmission Date: 20141002
  Serious: Yes (Life-Threatening, Hospitalization, Other)
  Sender: FDA-Public Use
  Company Number: 163-21880-11110559

PATIENT
  Age: 75 Year
  Sex: Female
  Weight: 94.8 kg

DRUGS (3)
  1. REVLIMID [Suspect]
     Indication: MYELODYSPLASTIC SYNDROME
     Dosage: 5 MG, 1 IN 1 D, PO
     Route: 048
     Dates: start: 20111025
  2. EXJADE [Suspect]
     Indication: IRON OVERLOAD
     Dosage: 2000 MG, 1 IN 1 D, PO
     Route: 048
     Dates: start: 20111123, end: 20111202
  3. TMP/HCTZ ( DYAZIDE) [Concomitant]

REACTIONS (12)
  - Fatigue [None]
  - Dyspnoea [None]
  - Tremor [None]
  - Rash generalised [None]
  - Abdominal pain upper [None]
  - Diarrhoea [None]
  - Nausea [None]
  - Pulmonary embolism [None]
  - Pneumonia [None]
  - Anaemia [None]
  - Urinary tract disorder [None]
  - Muscle spasms [None]
